FAERS Safety Report 7013574-1 (Version None)
Quarter: 2010Q3

REPORT INFORMATION
  Report Type: 
  Country: None (occurrence: None)
  Receive Date: 20100924
  Receipt Date: 20100916
  Transmission Date: 20110219
  Serious: Yes (Hospitalization, Other)
  Sender: FDA-Public Use
  Company Number: US-AMGEN-QUU429964

PATIENT
  Age: 62 Year
  Sex: Female
  Weight: 148 kg

DRUGS (25)
  1. SENSIPAR [Suspect]
     Indication: HYPERPARATHYROIDISM SECONDARY
     Route: 048
     Dates: start: 20071101, end: 20100318
  2. GLIPIZIDE [Concomitant]
     Route: 048
  3. OMEPRAZOLE [Concomitant]
     Route: 048
  4. SYNTHROID [Concomitant]
     Route: 048
  5. LOPRESSOR [Concomitant]
     Route: 048
  6. SEVELAMER [Concomitant]
     Route: 048
  7. PHENERGAN [Concomitant]
     Route: 048
  8. NEPHRON FA [Concomitant]
     Route: 048
  9. LIPITOR [Concomitant]
     Route: 048
  10. VITAMIN TAB [Concomitant]
     Route: 048
  11. ACTOS [Concomitant]
     Route: 048
  12. COLACE [Concomitant]
     Route: 048
  13. REGLAN [Concomitant]
     Route: 048
  14. DILTIAZEM [Concomitant]
     Route: 048
  15. ASPIRIN [Concomitant]
     Route: 048
  16. DIAMOX SRC [Concomitant]
     Route: 048
  17. ACETAMINOPHEN [Concomitant]
  18. BENADRYL [Concomitant]
  19. COUMADIN [Concomitant]
  20. EPOGEN [Concomitant]
  21. HEPARIN [Concomitant]
  22. NAPROXEN [Concomitant]
  23. OXYGEN [Concomitant]
  24. RENAGEL [Concomitant]
  25. VENOFER [Concomitant]

REACTIONS (9)
  - ATRIAL FIBRILLATION [None]
  - CONVULSION [None]
  - DEEP VEIN THROMBOSIS [None]
  - DEVICE RELATED INFECTION [None]
  - ENTEROBACTER SEPSIS [None]
  - KLEBSIELLA SEPSIS [None]
  - POST PROCEDURAL COMPLICATION [None]
  - PSEUDOMONAS INFECTION [None]
  - SEPTIC SHOCK [None]
